FAERS Safety Report 4814340-5 (Version None)
Quarter: 2005Q4

REPORT INFORMATION
  Report Type: 
  Country: None (occurrence: None)
  Receive Date: 20051028
  Receipt Date: 20050809
  Transmission Date: 20060501
  Serious: No
  Sender: FDA-Public Use
  Company Number: US-GLAXOSMITHKLINE-A0569524A

PATIENT
  Age: 39 Year
  Sex: Female

DRUGS (5)
  1. ADVAIR DISKUS 100/50 [Suspect]
     Indication: COUGH
     Dosage: 1PUFF TWICE PER DAY
     Route: 055
     Dates: start: 20050728, end: 20050805
  2. ALLEGRA [Concomitant]
  3. FLONASE [Concomitant]
  4. TYLENOL (CAPLET) [Concomitant]
  5. MULTI-VITAMIN [Concomitant]

REACTIONS (5)
  - CHILLS [None]
  - DERMATITIS [None]
  - MUSCULAR WEAKNESS [None]
  - PYREXIA [None]
  - RASH [None]
